FAERS Safety Report 12528490 (Version 1)
Quarter: 2016Q3

REPORT INFORMATION
  Report Type: Spontaneous
  Country: FR (occurrence: FR)
  Receive Date: 20160705
  Receipt Date: 20160705
  Transmission Date: 20161109
  Serious: Yes (Hospitalization)
  Sender: FDA-Public Use
  Company Number: FR-SA-2016SA121875

PATIENT
  Age: 69 Year
  Sex: Female

DRUGS (8)
  1. LIBRAX [Suspect]
     Active Substance: CHLORDIAZEPOXIDE HYDROCHLORIDE\CLIDINIUM BROMIDE
     Indication: DEPRESSION
     Route: 048
     Dates: start: 201605, end: 20160610
  2. CACIT [Concomitant]
     Active Substance: CALCIUM\VITAMIN D
     Dates: start: 2011
  3. SOTALEX [Suspect]
     Active Substance: SOTALOL
     Dosage: FORM-SCORED TABLET
     Route: 048
     Dates: start: 1992, end: 201602
  4. PIASCLEDINE [Concomitant]
     Active Substance: AVOCADO OIL\SOYBEAN OIL
  5. APROVEL [Suspect]
     Active Substance: IRBESARTAN
     Indication: ESSENTIAL HYPERTENSION
     Route: 048
     Dates: start: 20160404, end: 20160610
  6. ALPRAZOLAM. [Suspect]
     Active Substance: ALPRAZOLAM
     Route: 048
     Dates: start: 201603, end: 201606
  7. SOTALEX [Suspect]
     Active Substance: SOTALOL
     Route: 048
     Dates: start: 201602, end: 201606
  8. MONURIL [Concomitant]
     Active Substance: FOSFOMYCIN SODIUM
     Dates: start: 20160429, end: 20160429

REACTIONS (3)
  - Oedema peripheral [Recovered/Resolved]
  - Thrombocytopenia [Recovered/Resolved]
  - Rash maculo-papular [Recovering/Resolving]

NARRATIVE: CASE EVENT DATE: 20160607
